FAERS Safety Report 4660491-8 (Version None)
Quarter: 2005Q2

REPORT INFORMATION
  Report Type: 
  Country: None (occurrence: None)
  Receive Date: 20050511
  Receipt Date: 20050511
  Transmission Date: 20051028
  Serious: Yes (Hospitalization)
  Sender: FDA-Public Use
  Company Number: None

PATIENT
  Age: 61 Year
  Sex: Male
  Weight: 68.6 kg

DRUGS (13)
  1. NAPROXEN [Suspect]
     Indication: PAIN IN EXTREMITY
  2. NAPROXEN [Suspect]
     Indication: SHOULDER PAIN
  3. ASPIRIN [Suspect]
     Dosage: 81MG PO QD   CHRONIC
     Route: 048
  4. TOPROL-XL [Concomitant]
  5. NORVASC [Concomitant]
  6. PRILOSEC [Concomitant]
  7. FOLIC ACID [Concomitant]
  8. CALCIUM CARB [Concomitant]
  9. LOMOTIL [Concomitant]
  10. STARLIX [Concomitant]
  11. AMBIEN [Concomitant]
  12. TRAZODONE [Concomitant]
  13. NEPHRO-VITEQD [Concomitant]

REACTIONS (2)
  - GASTRIC ULCER [None]
  - HAEMATEMESIS [None]
